FAERS Safety Report 13672897 (Version 1)
Quarter: 2017Q2

REPORT INFORMATION
  Report Type: Spontaneous
  Country: US (occurrence: US)
  Receive Date: 20170621
  Receipt Date: 20170621
  Transmission Date: 20170830
  Serious: Yes (Other)
  Sender: FDA-Public Use
  Company Number: US-WEST-WARD PHARMACEUTICALS CORP.-US-H14001-17-02060

PATIENT
  Age: 59 Year
  Weight: 88.53 kg

DRUGS (3)
  1. MITOMYCIN. [Suspect]
     Active Substance: MITOMYCIN
     Indication: METASTASES TO LUNG
  2. MITOMYCIN. [Suspect]
     Active Substance: MITOMYCIN
     Indication: TONSIL CANCER
     Route: 065
     Dates: start: 20161212, end: 20170501
  3. NEULASTA [Concomitant]
     Active Substance: PEGFILGRASTIM
     Indication: PRODUCT USED FOR UNKNOWN INDICATION
     Route: 065
     Dates: start: 20161212

REACTIONS (4)
  - Hilar lymphadenopathy [Unknown]
  - Condition aggravated [Unknown]
  - Disease progression [Unknown]
  - Metastases to lung [Unknown]

NARRATIVE: CASE EVENT DATE: 20170426
